FAERS Safety Report 23080345 (Version 1)
Quarter: 2023Q4

REPORT INFORMATION
  Report Type: Other
  Country: US (occurrence: US)
  Receive Date: 20231018
  Receipt Date: 20231018
  Transmission Date: 20240110
  Serious: Yes (Other)
  Sender: FDA-Public Use
  Company Number: US-Merck Healthcare KGaA-2023480660

PATIENT
  Age: 26 Year
  Sex: Female

DRUGS (4)
  1. LEVOTHYROXINE [Suspect]
     Active Substance: LEVOTHYROXINE
     Indication: Autoimmune thyroiditis
  2. LEVOTHYROXINE [Suspect]
     Active Substance: LEVOTHYROXINE
  3. ESCITALOPRAM [Concomitant]
     Active Substance: ESCITALOPRAM OXALATE
     Indication: Product used for unknown indication
  4. BUPROPION [Concomitant]
     Active Substance: BUPROPION
     Indication: Product used for unknown indication

REACTIONS (7)
  - Suicidal ideation [Recovering/Resolving]
  - Depression [Recovering/Resolving]
  - Orthostatic hypotension [Unknown]
  - Lethargy [Unknown]
  - Temperature regulation disorder [Unknown]
  - Hyperthyroidism [Unknown]
  - Product prescribing error [Unknown]
